FAERS Safety Report 5715056-3 (Version None)
Quarter: 2008Q2

REPORT INFORMATION
  Report Type: 
  Country: None (occurrence: None)
  Receive Date: 20080423
  Receipt Date: 20080414
  Transmission Date: 20081010
  Serious: Yes (Other)
  Sender: FDA-Public Use
  Company Number: US-PFIZER INC-2008033105

PATIENT
  Sex: Male
  Weight: 62.727 kg

DRUGS (6)
  1. VIAGRA [Suspect]
     Indication: ERECTILE DYSFUNCTION
  2. ATENOLOL [Concomitant]
  3. PAROXETINE HCL [Concomitant]
  4. LORAZEPAM [Concomitant]
  5. GEODON [Concomitant]
  6. LAXATIVES [Concomitant]

REACTIONS (1)
  - BLINDNESS TRANSIENT [None]
